FAERS Safety Report 5130975-7 (Version None)
Quarter: 2006Q4

REPORT INFORMATION
  Report Type: 
  Country: None (occurrence: None)
  Receive Date: 20060829
  Receipt Date: 20060714
  Transmission Date: 20070319
  Serious: Yes (Other)
  Sender: FDA-Public Use
  Company Number: PHEH2006US05590

PATIENT
  Age: 76 Year
  Sex: Male
  Weight: 77.6 kg

DRUGS (1)
  1. EXJADE [Suspect]
     Indication: BLOOD IRON INCREASED
     Dosage: 1500 MG, QD, ORAL
     Route: 048
     Dates: start: 20060227, end: 20060424

REACTIONS (2)
  - BLOOD CREATININE INCREASED [None]
  - FLANK PAIN [None]
